FAERS Safety Report 5052168-4 (Version None)
Quarter: 2006Q3

REPORT INFORMATION
  Report Type: 
  Country: None (occurrence: None)
  Receive Date: 20060712
  Receipt Date: 20060712
  Transmission Date: 20061208
  Serious: No
  Sender: FDA-Public Use
  Company Number: None

PATIENT
  Age: 52 Year
  Sex: Female
  Weight: 60.3284 kg

DRUGS (1)
  1. PAXIL [Suspect]
     Indication: PANIC DISORDER
     Dosage: 20MG ONCE DAILY ORALLY
     Route: 048
     Dates: start: 19980501, end: 20050501

REACTIONS (4)
  - DYSKINESIA [None]
  - DYSTONIA [None]
  - MOVEMENT DISORDER [None]
  - TREMOR [None]
